FAERS Safety Report 7096681-7 (Version None)
Quarter: 2010Q4

REPORT INFORMATION
  Report Type: 
  Country: None (occurrence: None)
  Receive Date: 20101111
  Receipt Date: 20101011
  Transmission Date: 20110411
  Serious: Yes (Hospitalization)
  Sender: FDA-Public Use
  Company Number: US-BAYER-201018942NA

PATIENT
  Age: 29 Year
  Sex: Female
  Weight: 90 kg

DRUGS (3)
  1. YASMIN [Suspect]
     Indication: CONTRACEPTION
     Route: 048
     Dates: start: 20071009, end: 20080220
  2. ACETAMINOPHEN [Concomitant]
     Indication: PAIN
  3. PRENATAL VITAMINS [Concomitant]
     Indication: PREGNANCY
     Dates: start: 20080201, end: 20081001

REACTIONS (5)
  - CHEST PAIN [None]
  - DYSPNOEA [None]
  - PAIN IN EXTREMITY [None]
  - PREGNANCY ON ORAL CONTRACEPTIVE [None]
  - PULMONARY EMBOLISM [None]
